FAERS Safety Report 24930441 (Version 1)
Quarter: 2025Q1

REPORT INFORMATION
  Report Type: Spontaneous
  Country: US (occurrence: US)
  Receive Date: 20250205
  Receipt Date: 20250205
  Transmission Date: 20250409
  Serious: No
  Sender: PL DEVELOPMENTS
  Company Number: US-P+L Developments of Newyork Corporation-2170521

PATIENT

DRUGS (3)
  1. ADAPALENE [Suspect]
     Active Substance: ADAPALENE
     Indication: Collagen disorder
  2. ADAPALENE [Suspect]
     Active Substance: ADAPALENE
     Indication: Pigmentation disorder
  3. ADAPALENE [Suspect]
     Active Substance: ADAPALENE
     Indication: Acne

REACTIONS (1)
  - Product use in unapproved indication [Unknown]
